FAERS Safety Report 13912833 (Version 2)
Quarter: 2017Q4

REPORT INFORMATION
  Report Type: Spontaneous
  Country: US (occurrence: US)
  Receive Date: 20170828
  Receipt Date: 20171218
  Transmission Date: 20180320
  Serious: Yes (Hospitalization)
  Sender: FDA-Public Use
  Company Number: US-INCYTE CORPORATION-2017IN007017

PATIENT

DRUGS (2)
  1. JAKAFI [Suspect]
     Active Substance: RUXOLITINIB
     Dosage: 5 MG, BID
     Route: 048
     Dates: start: 20170724
  2. JAKAFI [Suspect]
     Active Substance: RUXOLITINIB
     Indication: ANAEMIA
     Dosage: 5 MG, BID
     Route: 048
     Dates: start: 20170724

REACTIONS (4)
  - Nasopharyngitis [Recovering/Resolving]
  - Drug dose omission [Unknown]
  - Dizziness [Not Recovered/Not Resolved]
  - Off label use [Not Recovered/Not Resolved]

NARRATIVE: CASE EVENT DATE: 2017
